FAERS Safety Report 7339656-2 (Version None)
Quarter: 2011Q1

REPORT INFORMATION
  Report Type: 
  Country: None (occurrence: None)
  Receive Date: 20110308
  Receipt Date: 20110302
  Transmission Date: 20110831
  Serious: Yes (Other)
  Sender: FDA-Public Use
  Company Number: US-BRISTOL-MYERS SQUIBB COMPANY-15583818

PATIENT
  Age: 29 Year
  Sex: Female

DRUGS (2)
  1. COUMADIN [Suspect]
     Indication: THROMBOSIS
     Dates: start: 20100101
  2. TRAZODONE HCL [Suspect]

REACTIONS (1)
  - HAEMORRHAGE [None]
